FAERS Safety Report 7761763-0 (Version None)
Quarter: 2011Q3

REPORT INFORMATION
  Report Type: 
  Country: None (occurrence: None)
  Receive Date: 20110915
  Receipt Date: 20110901
  Transmission Date: 20111222
  Serious: Yes (Other)
  Sender: FDA-Public Use
  Company Number: 2011-00656

PATIENT
  Age: 15 Month
  Sex: Male
  Weight: 10.4 kg

DRUGS (14)
  1. NYSTATIN [Concomitant]
  2. CODEINE SULFATE [Concomitant]
  3. LACTULOSE [Concomitant]
  4. MILRINONE [Concomitant]
  5. ASPIRIN [Concomitant]
  6. CEFOTAXIME [Suspect]
     Indication: ENDOCARDITIS
     Dosage: 500 MG (500 MG) INTRAVENOUS
     Route: 042
     Dates: start: 20110502, end: 20110526
  7. CEFUROXIME [Concomitant]
  8. ACETAMINOPHEN [Concomitant]
  9. VANCOMYCIN [Suspect]
     Indication: ENDOCARDITIS
     Dosage: 550 MG (550 MG) INTRAVENOUS
     Route: 042
     Dates: start: 20110502, end: 20110526
  10. RIFAMPICIN [Suspect]
     Indication: ENDOCARDITIS
     Dosage: 68 MG (68 MG) ORAL
     Route: 048
     Dates: start: 20110502, end: 20110526
  11. GENTAMICIN [Concomitant]
  12. FUROSEMIDE [Suspect]
     Indication: CARDIAC DISORDER
     Dosage: 5 MG (5 MG), ORAL
     Route: 048
     Dates: start: 20100305, end: 20110528
  13. SPIRONOLACTONE [Concomitant]
  14. HEPARIN [Concomitant]

REACTIONS (3)
  - RASH PAPULAR [None]
  - DRUG INTERACTION [None]
  - RASH ERYTHEMATOUS [None]
